FAERS Safety Report 11106082 (Version 2)
Quarter: 2015Q2

REPORT INFORMATION
  Report Type: Report from Study
  Country: DE (occurrence: DE)
  Receive Date: 20150512
  Receipt Date: 20150522
  Transmission Date: 20150821
  Serious: Yes (Hospitalization)
  Sender: FDA-Public Use
  Company Number: DE-BIOGENIDEC-2015BI058611

PATIENT
  Age: 59 Year
  Sex: Female

DRUGS (6)
  1. METHIZOL [Concomitant]
     Active Substance: METHIMAZOLE
  2. ASPIRIN. [Concomitant]
     Active Substance: ASPIRIN
  3. SULPIRID [Concomitant]
     Active Substance: SULPIRIDE
  4. LEVODOPA [Concomitant]
     Active Substance: LEVODOPA
  5. TYSABRI [Suspect]
     Active Substance: NATALIZUMAB
     Indication: RELAPSING-REMITTING MULTIPLE SCLEROSIS
     Dates: start: 20090805
  6. KEPPRA [Concomitant]
     Active Substance: LEVETIRACETAM

REACTIONS (1)
  - Knee arthroplasty [Recovered/Resolved with Sequelae]

NARRATIVE: CASE EVENT DATE: 20141123
